FAERS Safety Report 18085115 (Version 8)
Quarter: 2022Q4

REPORT INFORMATION
  Report Type: Spontaneous
  Country: CL (occurrence: CL)
  Receive Date: 20200728
  Receipt Date: 20221229
  Transmission Date: 20230112
  Serious: Yes (Hospitalization, Disabling, Other)
  Sender: FDA-Public Use
  Company Number: CL-BIOMARINAP-CL-2020-131407

PATIENT

DRUGS (2)
  1. VIMIZIM [Suspect]
     Active Substance: ELOSULFASE ALFA
     Indication: Mucopolysaccharidosis IV
     Dosage: 2 MILLIGRAM/KILOGRAM, QW
     Route: 042
     Dates: start: 20150417
  2. VIMIZIM [Suspect]
     Active Substance: ELOSULFASE ALFA
     Dosage: UNK
     Route: 042
     Dates: start: 20160101

REACTIONS (17)
  - Spinal cord compression [Recovering/Resolving]
  - Mobility decreased [Recovering/Resolving]
  - Dyspnoea [Recovering/Resolving]
  - Oxygen saturation decreased [Not Recovered/Not Resolved]
  - Apnoea [Not Recovered/Not Resolved]
  - Vomiting [Recovering/Resolving]
  - Neck pain [Recovering/Resolving]
  - Arthralgia [Recovering/Resolving]
  - Paresis [Recovering/Resolving]
  - Paraesthesia [Recovering/Resolving]
  - Quadriplegia [Recovering/Resolving]
  - Spinal cord injury [Recovering/Resolving]
  - Post-traumatic neck syndrome [Recovering/Resolving]
  - Fall [Recovering/Resolving]
  - Paraparesis [Recovering/Resolving]
  - Quadriparesis [Recovering/Resolving]
  - Pain in extremity [Recovering/Resolving]

NARRATIVE: CASE EVENT DATE: 20200101
